FAERS Safety Report 19251397 (Version 3)
Quarter: 2022Q1

REPORT INFORMATION
  Report Type: Report from Study
  Country: IT (occurrence: None)
  Receive Date: 20210513
  Receipt Date: 20220124
  Transmission Date: 20220423
  Serious: Yes (Hospitalization)
  Sender: FDA-Public Use
  Company Number: IT-ROCHE-2809963

PATIENT
  Age: 77 Year
  Sex: Female
  Weight: 70 kg

DRUGS (3)
  1. ATEZOLIZUMAB [Suspect]
     Active Substance: ATEZOLIZUMAB
     Indication: Small cell lung cancer extensive stage
     Dosage: DOSE OF LAST ATEZOLIZUMAB ADMINISTERED PRIOR TO AE AND SAE ONSET:1200 MG?DATE OF MOST RECENT DOSE OF
     Route: 041
     Dates: start: 20200512
  2. ETOPOSIDE [Suspect]
     Active Substance: ETOPOSIDE
     Indication: Small cell lung cancer extensive stage
     Dosage: DOSE OF LAST ETOPOSIDE ADMINISTERED PRIOR TO AE/SAE ONSET WAS 156 MG?DATE OF MOST RECENT DOSE OF ETO
     Route: 042
     Dates: start: 20200512
  3. CARBOPLATIN [Suspect]
     Active Substance: CARBOPLATIN
     Indication: Small cell lung cancer extensive stage
     Dosage: INITIAL TARGET AUC OF 5 MG/ML/MIN (DOSE AS PER PROTOCOL)?DOSE OF LAST CARBOPLATIN ADMINISTERED PRIO
     Route: 042
     Dates: start: 20200512

REACTIONS (2)
  - Ataxia [Recovered/Resolved]
  - Ataxia [Not Recovered/Not Resolved]

NARRATIVE: CASE EVENT DATE: 20210408
